FAERS Safety Report 8183677 (Version 3)
Quarter: 2013Q3

REPORT INFORMATION
  Report Type: Report from Study
  Country: US (occurrence: US)
  Receive Date: 20111017
  Receipt Date: 20130827
  Transmission Date: 20140515
  Serious: Yes (Other)
  Sender: FDA-Public Use
  Company Number: PHHO2010US04748

PATIENT
  Age: 53 Year
  Sex: Male
  Weight: 75 kg

DRUGS (2)
  1. GILENYA [Suspect]
     Indication: MULTIPLE SCLEROSIS
     Dosage: DOSE BLINDED
     Route: 048
     Dates: start: 20091109, end: 20100114
  2. GILENYA [Suspect]
     Dosage: 0.5 MG, QD
     Route: 048
     Dates: start: 20100115, end: 20100325

REACTIONS (2)
  - Squamous cell carcinoma of skin [Recovered/Resolved]
  - Papule [Recovered/Resolved]
